FAERS Safety Report 14983372 (Version 1)
Quarter: 2018Q2

REPORT INFORMATION
  Report Type: Spontaneous
  Country: US (occurrence: US)
  Receive Date: 20180515
  Receipt Date: 20180515
  Transmission Date: 20180711
  Serious: Yes (Hospitalization)
  Sender: FDA-Public Use
  Company Number: None

PATIENT
  Age: 27 Year
  Sex: Female
  Weight: 56.7 kg

DRUGS (3)
  1. DESVENLAFAXINE SUCCINATE. [Suspect]
     Active Substance: DESVENLAFAXINE SUCCINATE
     Indication: MAJOR DEPRESSION
     Route: 048
     Dates: start: 20180401, end: 20180411
  2. BUPROPION. [Concomitant]
     Active Substance: BUPROPION
  3. BIRTH CONTROL PILL [Concomitant]
     Active Substance: UNSPECIFIED INGREDIENT

REACTIONS (8)
  - Paraesthesia [None]
  - Confusional state [None]
  - Irritability [None]
  - Impaired work ability [None]
  - Tinnitus [None]
  - Disturbance in attention [None]
  - Dizziness [None]
  - Dyskinesia [None]

NARRATIVE: CASE EVENT DATE: 20180410
